FAERS Safety Report 8032531-X (Version None)
Quarter: 2012Q1

REPORT INFORMATION
  Report Type: 
  Country: None (occurrence: None)
  Receive Date: 20120110
  Receipt Date: 20101207
  Transmission Date: 20120608
  Serious: No
  Sender: FDA-Public Use
  Company Number: US-MYLANLABS-2010S1022537

PATIENT
  Sex: Female

DRUGS (1)
  1. LOVASTATIN [Suspect]
     Dates: end: 20101207

REACTIONS (3)
  - REACTION TO DRUG EXCIPIENTS [None]
  - URTICARIA [None]
  - PRURITUS [None]
